FAERS Safety Report 23799493 (Version 1)
Quarter: 2024Q2

REPORT INFORMATION
  Report Type: Spontaneous
  Country: US (occurrence: US)
  Receive Date: 20240430
  Receipt Date: 20240430
  Transmission Date: 20240716
  Serious: No
  Sender: FDA-Public Use
  Company Number: US-BAYER-2024A063407

PATIENT
  Age: 71 Year
  Sex: Male

DRUGS (3)
  1. CLARITIN [Suspect]
     Active Substance: LORATADINE
     Indication: Hypersensitivity
     Dosage: 1 DF, HS
     Route: 048
     Dates: start: 20240419, end: 20240425
  2. CLARITIN [Suspect]
     Active Substance: LORATADINE
     Indication: Nasopharyngitis
  3. CLARITIN [Suspect]
     Active Substance: LORATADINE
     Indication: Sleep disorder

REACTIONS (2)
  - Increased upper airway secretion [None]
  - Drug effect less than expected [None]

NARRATIVE: CASE EVENT DATE: 20240419
